FAERS Safety Report 13591596 (Version 3)
Quarter: 2017Q4

REPORT INFORMATION
  Report Type: Spontaneous
  Country: US (occurrence: US)
  Receive Date: 20170529
  Receipt Date: 20171212
  Transmission Date: 20180320
  Serious: No
  Sender: FDA-Public Use
  Company Number: US-PFIZER INC-2017234485

PATIENT
  Age: 55 Year
  Sex: Female

DRUGS (1)
  1. XELJANZ XR [Suspect]
     Active Substance: TOFACITINIB CITRATE
     Indication: RHEUMATOID ARTHRITIS
     Dosage: 11 MG, DAILY
     Route: 048
     Dates: start: 201705

REACTIONS (7)
  - Feeling hot [Unknown]
  - Arthralgia [Unknown]
  - Peripheral swelling [Unknown]
  - Muscle swelling [Unknown]
  - Thirst [Recovering/Resolving]
  - Myalgia [Unknown]
  - Induration [Unknown]
